FAERS Safety Report 9681923 (Version 1)
Quarter: 2013Q4

REPORT INFORMATION
  Report Type: Spontaneous
  Country: GB (occurrence: GB)
  Receive Date: 20131111
  Receipt Date: 20131111
  Transmission Date: 20140711
  Serious: Yes (Life-Threatening, Hospitalization)
  Sender: FDA-Public Use
  Company Number: PHHY2013GB124776

PATIENT
  Age: 48 Year
  Sex: Female

DRUGS (5)
  1. PERINDOPRIL [Suspect]
     Dosage: 4 MG, QD
     Route: 048
  2. LANSOPRAZOLE [Suspect]
     Dosage: 30 MG, QD
     Route: 048
  3. WARFARIN [Concomitant]
  4. ATENOLOL [Concomitant]
  5. FLUOXETINE [Concomitant]

REACTIONS (3)
  - Hypokalaemia [Recovering/Resolving]
  - Hypomagnesaemia [Recovering/Resolving]
  - Hypocalcaemia [Recovering/Resolving]
